FAERS Safety Report 22125746 (Version 1)
Quarter: 2023Q1

REPORT INFORMATION
  Report Type: Spontaneous
  Country: US (occurrence: US)
  Receive Date: 20230322
  Receipt Date: 20230322
  Transmission Date: 20230417
  Serious: No
  Sender: FDA-Public Use
  Company Number: US-PFIZER INC-PV202300053724

PATIENT
  Age: 81 Year
  Sex: Male
  Weight: 79 kg

DRUGS (4)
  1. PAXLOVID [Interacting]
     Active Substance: NIRMATRELVIR\RITONAVIR
     Indication: COVID-19 treatment
     Dosage: UNK
  2. XTANDI [Interacting]
     Active Substance: ENZALUTAMIDE
     Indication: Benign prostatic hyperplasia
     Dosage: 160 MG, 1X/DAY
     Route: 048
     Dates: start: 20220426
  3. XTANDI [Interacting]
     Active Substance: ENZALUTAMIDE
     Indication: Prostatic specific antigen increased
  4. XTANDI [Interacting]
     Active Substance: ENZALUTAMIDE
     Indication: Prostate cancer

REACTIONS (1)
  - Drug interaction [Unknown]
